FAERS Safety Report 8434491-6 (Version None)
Quarter: 2012Q2

REPORT INFORMATION
  Report Type: 
  Country: None (occurrence: None)
  Receive Date: 20120614
  Receipt Date: 20120608
  Transmission Date: 20120825
  Serious: No
  Sender: FDA-Public Use
  Company Number: US-BIOGENIDEC-2012BI008722

PATIENT
  Sex: Female

DRUGS (4)
  1. TYSABRI [Suspect]
     Route: 042
     Dates: start: 20120301, end: 20120426
  2. STEROIDS [Concomitant]
     Indication: PREMEDICATION
     Dates: start: 20120426
  3. TYSABRI [Suspect]
     Indication: MULTIPLE SCLEROSIS
     Route: 042
     Dates: start: 20050101, end: 20050101
  4. AVONEX [Concomitant]
     Indication: MULTIPLE SCLEROSIS
     Route: 030
     Dates: start: 20010720

REACTIONS (8)
  - HEADACHE [None]
  - JOINT SWELLING [None]
  - NAUSEA [None]
  - PALPITATIONS [None]
  - ARTHRALGIA [None]
  - ARTHRITIS [None]
  - VOMITING [None]
  - FLUSHING [None]
